FAERS Safety Report 9969228 (Version 2)
Quarter: 2014Q1

REPORT INFORMATION
  Report Type: Report from Study
  Country: US (occurrence: US)
  Receive Date: 20140306
  Receipt Date: 20140326
  Transmission Date: 20141002
  Serious: Yes (Other)
  Sender: FDA-Public Use
  Company Number: US-ROCHE-1358583

PATIENT
  Sex: Male

DRUGS (3)
  1. XOLAIR [Suspect]
     Indication: ASTHMA
     Route: 065
  2. DULERA [Concomitant]
     Dosage: 200/51 EVERY 1 EVERY 12 HOURS
     Route: 065
  3. PULMICORT [Concomitant]
     Dosage: 2 QUIRTS TWICE A DAY EACH NOSTRIL
     Route: 065

REACTIONS (3)
  - Aural polyp [Unknown]
  - Deafness [Unknown]
  - Ear disorder [Unknown]
